FAERS Safety Report 8075002-7 (Version None)
Quarter: 2012Q1

REPORT INFORMATION
  Report Type: 
  Country: None (occurrence: None)
  Receive Date: 20120127
  Receipt Date: 20120118
  Transmission Date: 20120608
  Serious: No
  Sender: FDA-Public Use
  Company Number: US-BIOGENIDEC-2011BI046126

PATIENT
  Age: 40 Year
  Sex: Female

DRUGS (1)
  1. TYSABRI [Suspect]
     Indication: MULTIPLE SCLEROSIS
     Route: 042
     Dates: start: 20110817, end: 20111116

REACTIONS (5)
  - DRUG SPECIFIC ANTIBODY PRESENT [None]
  - NECK PAIN [None]
  - CHEST DISCOMFORT [None]
  - INFUSION RELATED REACTION [None]
  - HYPERSENSITIVITY [None]
